FAERS Safety Report 5368947-X (Version None)
Quarter: 2007Q2

REPORT INFORMATION
  Report Type: 
  Country: None (occurrence: None)
  Receive Date: 20070625
  Receipt Date: 20061205
  Transmission Date: 20071010
  Serious: No
  Sender: FDA-Public Use
  Company Number: US-ASTRAZENECA-2006UW27093

PATIENT
  Age: 71 Year
  Sex: Male
  Weight: 87.1 kg

DRUGS (1)
  1. CRESTOR [Suspect]
     Indication: BLOOD CHOLESTEROL INCREASED
     Route: 048
     Dates: end: 20061201

REACTIONS (3)
  - ABDOMINAL PAIN UPPER [None]
  - MYALGIA [None]
  - NASOPHARYNGITIS [None]
